FAERS Safety Report 19562676 (Version 2)
Quarter: 2021Q3

REPORT INFORMATION
  Report Type: Spontaneous
  Country: US (occurrence: US)
  Receive Date: 20210715
  Receipt Date: 20210903
  Transmission Date: 20211014
  Serious: Yes (Hospitalization, Other)
  Sender: FDA-Public Use
  Company Number: US-BRISTOL-MYERS SQUIBB COMPANY-BMS-2021-066928

PATIENT
  Age: 79 Year
  Sex: Male
  Weight: 80.7 kg

DRUGS (8)
  1. TYVASO [Suspect]
     Active Substance: TREPROSTINIL
     Dosage: 18?54 MICROG, QID
     Dates: start: 202105
  2. TYVASO [Suspect]
     Active Substance: TREPROSTINIL
     Dosage: 36 MICROGRAM, QID
     Dates: start: 202105
  3. TADALAFIL. [Concomitant]
     Active Substance: TADALAFIL
     Indication: PRODUCT USED FOR UNKNOWN INDICATION
     Dosage: UNK
     Route: 065
  4. TYVASO [Suspect]
     Active Substance: TREPROSTINIL
     Dosage: 18 MICROGRAM, QID
     Dates: start: 20210526
  5. TYVASO [Suspect]
     Active Substance: TREPROSTINIL
     Indication: PULMONARY ARTERIAL HYPERTENSION
     Dosage: UNK
     Dates: start: 20210506
  6. ELIQUIS [Suspect]
     Active Substance: APIXABAN
     Indication: PRODUCT USED FOR UNKNOWN INDICATION
     Dosage: UNK
     Route: 065
  7. TYVASO [Suspect]
     Active Substance: TREPROSTINIL
     Dosage: UNK
     Dates: start: 2021
  8. ASPIRIN [ACETYLSALICYLIC ACID] [Suspect]
     Active Substance: ASPIRIN
     Indication: PRODUCT USED FOR UNKNOWN INDICATION
     Dosage: UNK
     Route: 065

REACTIONS (14)
  - Hypotension [Recovering/Resolving]
  - Asthenia [Unknown]
  - Cough [Recovered/Resolved]
  - Back pain [Unknown]
  - Myalgia [Recovering/Resolving]
  - Dizziness [Recovered/Resolved]
  - Bowel movement irregularity [Unknown]
  - Headache [Not Recovered/Not Resolved]
  - Constipation [Unknown]
  - Blood count abnormal [Unknown]
  - Pruritus [Not Recovered/Not Resolved]
  - Epistaxis [Not Recovered/Not Resolved]
  - Haemorrhage [Unknown]
  - Haematochezia [Unknown]

NARRATIVE: CASE EVENT DATE: 2021
